FAERS Safety Report 5710442-X (Version None)
Quarter: 2008Q2

REPORT INFORMATION
  Report Type: 
  Country: None (occurrence: None)
  Receive Date: 20080418
  Receipt Date: 20080410
  Transmission Date: 20081010
  Serious: Yes (Other)
  Sender: FDA-Public Use
  Company Number: JP-PFIZER INC-2008033524

PATIENT
  Age: 86 Year
  Sex: Male

DRUGS (13)
  1. CELECOX [Suspect]
     Indication: OSTEOARTHRITIS
     Dosage: DAILY DOSE:200MG
     Route: 048
     Dates: start: 20080327, end: 20080410
  2. OPALMON [Concomitant]
     Dosage: DAILY DOSE:15MCG
     Route: 048
  3. MITIGLINIDE [Concomitant]
     Dosage: DAILY DOSE:30MG
     Route: 048
  4. ALUMINIUM HYDROXIDE W/ MAGNESIUM HYDROXIDE [Concomitant]
     Dosage: DAILY DOSE:30ML
     Route: 048
  5. PARIET [Concomitant]
     Dosage: DAILY DOSE:1MG
     Route: 048
  6. VASOLAN [Concomitant]
     Dosage: DAILY DOSE:120MG
     Route: 048
  7. RIZABEN [Concomitant]
     Dosage: DAILY DOSE:300MG
     Route: 048
  8. NU LOTAN [Concomitant]
     Dosage: DAILY DOSE:25MG
     Route: 048
  9. FLUITRAN [Concomitant]
     Dosage: DAILY DOSE:2MG
     Route: 048
  10. PERSELIN [Concomitant]
     Dosage: DAILY DOSE:50MG
     Route: 048
  11. NITRODERM [Concomitant]
  12. KETOPROFEN [Concomitant]
  13. GENTACIN [Concomitant]

REACTIONS (1)
  - ALTERED STATE OF CONSCIOUSNESS [None]
